FAERS Safety Report 7881940-8 (Version None)
Quarter: 2011Q4

REPORT INFORMATION
  Report Type: 
  Country: None (occurrence: None)
  Receive Date: 20111101
  Receipt Date: 20110606
  Transmission Date: 20120403
  Serious: No
  Sender: FDA-Public Use
  Company Number: US-AMGEN-USASP2011028918

PATIENT
  Sex: Female

DRUGS (2)
  1. ORENCIA [Concomitant]
  2. ENBREL [Suspect]
     Indication: RHEUMATOID ARTHRITIS
     Dosage: 50 MG, QWK
     Dates: start: 19990101, end: 20110401

REACTIONS (6)
  - CONJUNCTIVITIS [None]
  - TINEA PEDIS [None]
  - RHEUMATOID ARTHRITIS [None]
  - IMPETIGO [None]
  - SINUSITIS [None]
  - EAR INFECTION [None]
